FAERS Safety Report 12375030 (Version 1)
Quarter: 2016Q2

REPORT INFORMATION
  Report Type: Spontaneous
  Country: GB (occurrence: GB)
  Receive Date: 20160517
  Receipt Date: 20160517
  Transmission Date: 20160815
  Serious: Yes (Other)
  Sender: FDA-Public Use
  Company Number: GB-ACTELION-A-CH2016-135998

PATIENT
  Age: 69 Year
  Sex: Female

DRUGS (7)
  1. SILDENAFIL. [Concomitant]
     Active Substance: SILDENAFIL
  2. CODEINE [Concomitant]
     Active Substance: CODEINE
  3. FRUSEMIDE [Concomitant]
     Active Substance: FUROSEMIDE
  4. WARFARIN [Concomitant]
     Active Substance: WARFARIN
  5. SPIRONOLACTONE. [Concomitant]
     Active Substance: SPIRONOLACTONE
  6. OPSUMIT [Suspect]
     Active Substance: MACITENTAN
     Indication: PULMONARY ARTERIAL HYPERTENSION
     Dosage: 10 MG, OD
     Route: 048
     Dates: start: 20160413, end: 20160422
  7. PARACETAMOL [Concomitant]
     Active Substance: ACETAMINOPHEN

REACTIONS (14)
  - Hypotension [Recovering/Resolving]
  - Oedema [Recovering/Resolving]
  - Joint swelling [Unknown]
  - Poor quality sleep [Unknown]
  - Abnormal weight gain [Unknown]
  - Headache [Recovering/Resolving]
  - Pyrexia [Recovering/Resolving]
  - Ocular hyperaemia [Recovering/Resolving]
  - Swelling face [Recovering/Resolving]
  - Foreign body sensation in eyes [Unknown]
  - Peripheral swelling [Recovering/Resolving]
  - Feeling hot [Recovering/Resolving]
  - Pain [Unknown]
  - Eye swelling [Unknown]

NARRATIVE: CASE EVENT DATE: 20160414
